FAERS Safety Report 17828210 (Version 1)
Quarter: 2020Q2

REPORT INFORMATION
  Report Type: Spontaneous
  Country: IN (occurrence: IN)
  Receive Date: 20200527
  Receipt Date: 20200527
  Transmission Date: 20200714
  Serious: Yes (Other)
  Sender: FDA-Public Use
  Company Number: IN-TORRENT-00002528

PATIENT
  Age: 16 Year
  Sex: Female

DRUGS (2)
  1. LEVETIRACETAM. [Suspect]
     Active Substance: LEVETIRACETAM
     Indication: PROPHYLAXIS
  2. PHENOBARBITONE [Suspect]
     Active Substance: PHENOBARBITAL
     Indication: PROPHYLAXIS

REACTIONS (1)
  - Weight increased [Recovered/Resolved]
